FAERS Safety Report 12841680 (Version 1)
Quarter: 2016Q4

REPORT INFORMATION
  Report Type: Report from Study
  Country: None (occurrence: GB)
  Receive Date: 20161012
  Receipt Date: 20161012
  Transmission Date: 20170207
  Serious: Yes (Other)
  Sender: FDA-Public Use
  Company Number: GB-ABBVIE-16P-167-1748977-00

PATIENT
  Sex: Female

DRUGS (2)
  1. HUMIRA [Suspect]
     Active Substance: ADALIMUMAB
     Indication: HIDRADENITIS
     Dosage: UNSPECIFIED LOADING DOSE
     Route: 058
  2. HUMIRA [Suspect]
     Active Substance: ADALIMUMAB
     Route: 058

REACTIONS (13)
  - Gait disturbance [Not Recovered/Not Resolved]
  - Dizziness [Recovered/Resolved]
  - Malaise [Recovering/Resolving]
  - Feeling abnormal [Recovered/Resolved]
  - Drug ineffective [Unknown]
  - Dysgeusia [Recovering/Resolving]
  - Swelling [Recovering/Resolving]
  - Oropharyngeal pain [Recovering/Resolving]
  - Choking sensation [Recovering/Resolving]
  - Sensation of foreign body [Recovering/Resolving]
  - Anaphylactic reaction [Recovering/Resolving]
  - Nausea [Recovered/Resolved]
  - Dry mouth [Recovered/Resolved]
